FAERS Safety Report 4700656-X (Version None)
Quarter: 2005Q2

REPORT INFORMATION
  Report Type: 
  Country: None (occurrence: None)
  Receive Date: 20050627
  Receipt Date: 20050216
  Transmission Date: 20051028
  Serious: Yes (Hospitalization, Disabling, Other)
  Sender: FDA-Public Use
  Company Number: US-MERCK-0502USA02333

PATIENT
  Age: 58 Year
  Sex: Male
  Weight: 95 kg

DRUGS (4)
  1. CLARITIN [Concomitant]
     Indication: SINUS CONGESTION
     Route: 048
     Dates: start: 20000705
  2. VIOXX [Suspect]
     Indication: LUMBAR SPINAL STENOSIS
     Route: 048
     Dates: start: 20020401, end: 20031001
  3. VIOXX [Suspect]
     Route: 048
     Dates: start: 20020401, end: 20031001
  4. VENTILAN (ALBUTEROL) [Concomitant]
     Indication: SINUS CONGESTION
     Route: 055

REACTIONS (8)
  - ARTHRALGIA [None]
  - CAROTID ARTERY STENOSIS [None]
  - CEREBROVASCULAR ACCIDENT [None]
  - CHRONIC OBSTRUCTIVE PULMONARY DISEASE [None]
  - LUMBAR SPINAL STENOSIS [None]
  - PRESCRIBED OVERDOSE [None]
  - STAPHYLOCOCCAL INFECTION [None]
  - TRANSIENT ISCHAEMIC ATTACK [None]
